FAERS Safety Report 17146102 (Version 6)
Quarter: 2020Q1

REPORT INFORMATION
  Report Type: Spontaneous
  Country: FR (occurrence: FR)
  Receive Date: 20191212
  Receipt Date: 20200206
  Transmission Date: 20200409
  Serious: Yes (Other)
  Sender: FDA-Public Use
  Company Number: FR-009507513-1912FRA003469

PATIENT
  Age: 38 Year
  Sex: Female
  Weight: 80 kg

DRUGS (1)
  1. NEXPLANON [Suspect]
     Active Substance: ETONOGESTREL
     Dosage: AN IMPLANT
     Route: 059
     Dates: start: 20171207, end: 20191204

REACTIONS (5)
  - Unintended pregnancy [Not Recovered/Not Resolved]
  - Pregnancy with implant contraceptive [Not Recovered/Not Resolved]
  - Twin pregnancy [Not Recovered/Not Resolved]
  - Menstruation normal [Unknown]
  - Device defective [Unknown]

NARRATIVE: CASE EVENT DATE: 20190727
